FAERS Safety Report 10055897 (Version 2)
Quarter: 2014Q2

REPORT INFORMATION
  Report Type: Spontaneous
  Country: VN (occurrence: VN)
  Receive Date: 20140403
  Receipt Date: 20140422
  Transmission Date: 20141212
  Serious: Yes (Other)
  Sender: FDA-Public Use
  Company Number: VN-JNJFOC-20140317800

PATIENT
  Age: 56 Year
  Sex: Male
  Weight: 65 kg

DRUGS (3)
  1. REMICADE [Suspect]
     Indication: ANKYLOSING SPONDYLITIS
     Route: 042
     Dates: start: 20140125
  2. REMICADE [Suspect]
     Indication: ANKYLOSING SPONDYLITIS
     Dosage: 3RD DOSE
     Route: 042
     Dates: start: 20140315
  3. REMICADE [Suspect]
     Indication: ANKYLOSING SPONDYLITIS
     Route: 042
     Dates: start: 20140219

REACTIONS (4)
  - Infusion related reaction [Recovered/Resolved]
  - Rash [Recovered/Resolved]
  - Pruritus generalised [Recovered/Resolved]
  - Head discomfort [Recovered/Resolved]
